FAERS Safety Report 6944465-X (Version None)
Quarter: 2010Q3

REPORT INFORMATION
  Report Type: 
  Country: None (occurrence: None)
  Receive Date: 20100827
  Receipt Date: 20100820
  Transmission Date: 20110219
  Serious: Yes (Hospitalization)
  Sender: FDA-Public Use
  Company Number: PL-PFIZER INC-2010105667

PATIENT
  Age: 65 Year
  Sex: Male
  Weight: 72 kg

DRUGS (6)
  1. XANAX [Suspect]
     Indication: DEPRESSION
     Dosage: 0.5 MG, 3X/DAY
     Route: 048
     Dates: start: 20091215, end: 20091224
  2. CLORANXEN [Suspect]
     Dosage: 10 MG, 3X/DAY
     Route: 048
     Dates: start: 20091215, end: 20091224
  3. MIRTAZAPINE [Suspect]
     Dosage: TDD 30 MG
     Route: 048
     Dates: start: 20091215, end: 20091224
  4. EFFECTIN [Concomitant]
     Dosage: UNK
  5. TERTENSIF [Concomitant]
     Dosage: UNK
  6. RAMIPRIL [Concomitant]
     Dosage: UNK

REACTIONS (3)
  - BALANCE DISORDER [None]
  - CONFUSIONAL STATE [None]
  - SPEECH DISORDER [None]
